FAERS Safety Report 5890278-X (Version None)
Quarter: 2008Q3

REPORT INFORMATION
  Report Type: 
  Country: None (occurrence: None)
  Receive Date: 20080918
  Receipt Date: 20080905
  Transmission Date: 20090109
  Serious: Yes (Hospitalization)
  Sender: FDA-Public Use
  Company Number: PYLE-2008-018

PATIENT
  Age: 28 Year
  Sex: Female

DRUGS (5)
  1. PYLERA [Suspect]
     Indication: HELICOBACTER INFECTION
     Dosage: 3 CAPSULES QID PO
     Route: 048
     Dates: start: 20080310, end: 20080310
  2. OMEPRAZOLE [Concomitant]
  3. ENZYMES FOR DIGESTION [Concomitant]
  4. VITAMINS [Concomitant]
  5. AMOXICILLIN [Concomitant]

REACTIONS (4)
  - LEUKOPENIA [None]
  - NEUROPATHY PERIPHERAL [None]
  - PARAESTHESIA [None]
  - WEGENER'S GRANULOMATOSIS [None]
